FAERS Safety Report 8003899-5 (Version None)
Quarter: 2011Q4

REPORT INFORMATION
  Report Type: 
  Country: None (occurrence: None)
  Receive Date: 20111222
  Receipt Date: 20111212
  Transmission Date: 20120403
  Serious: Yes (Hospitalization, Other)
  Sender: FDA-Public Use
  Company Number: US-ASTRAZENECA-2011SE40603

PATIENT
  Age: 80 Year
  Sex: Female

DRUGS (15)
  1. OMEPRAZOLE [Suspect]
     Route: 048
  2. AMLODIPINE [Concomitant]
  3. LEVOTHYROXINE SODIUM [Concomitant]
  4. POTASSIUM PHOSPHATES [Concomitant]
  5. NEXIUM [Suspect]
     Indication: GASTROOESOPHAGEAL REFLUX DISEASE
     Route: 048
  6. HYZAAR [Concomitant]
     Dosage: 100 / 25 MG DAILY
  7. SIMVASTATIN [Concomitant]
  8. PLAVIX [Concomitant]
  9. METFORMIN HCL [Concomitant]
  10. ARIXTRA [Concomitant]
  11. ASPIRIN [Concomitant]
  12. CRESTOR [Suspect]
     Route: 048
  13. ANTIHYPERTENSIVE MEDICATION [Concomitant]
  14. CARVEDILOL [Concomitant]
  15. VITAMIN D [Concomitant]

REACTIONS (29)
  - HALLUCINATION [None]
  - ASTHMA [None]
  - SPIDER NAEVUS [None]
  - ALOPECIA [None]
  - VOMITING [None]
  - INSULIN-REQUIRING TYPE 2 DIABETES MELLITUS [None]
  - OEDEMA [None]
  - NAUSEA [None]
  - HYPERTENSION [None]
  - RHABDOMYOLYSIS [None]
  - DIZZINESS [None]
  - PAIN [None]
  - CONTUSION [None]
  - TRANSIENT ISCHAEMIC ATTACK [None]
  - ORTHOSTATIC HYPOTENSION [None]
  - BACK PAIN [None]
  - MOBILITY DECREASED [None]
  - LEFT VENTRICULAR HYPERTROPHY [None]
  - DYSLIPIDAEMIA [None]
  - POLYP [None]
  - COLITIS [None]
  - DEHYDRATION [None]
  - SYNCOPE [None]
  - DYSARTHRIA [None]
  - HYPOTHYROIDISM [None]
  - FALL [None]
  - DIVERTICULUM [None]
  - RHEUMATOID ARTHRITIS [None]
  - DIARRHOEA [None]
